FAERS Safety Report 5174993-1 (Version None)
Quarter: 2006Q4

REPORT INFORMATION
  Report Type: 
  Country: None (occurrence: None)
  Receive Date: 20061206
  Receipt Date: 20061124
  Transmission Date: 20070319
  Serious: Yes (Other)
  Sender: FDA-Public Use
  Company Number: 2006147095

PATIENT
  Age: 50 Year
  Sex: Female

DRUGS (2)
  1. NEURONTIN [Suspect]
     Indication: BACK PAIN
     Dosage: 100 MG
     Dates: start: 20061121, end: 20061122
  2. CHLORMADINONE ACETATE TAB [Concomitant]

REACTIONS (2)
  - CONDITION AGGRAVATED [None]
  - CYSTITIS HAEMORRHAGIC [None]
